FAERS Safety Report 8612680-5 (Version None)
Quarter: 2012Q3

REPORT INFORMATION
  Report Type: 
  Country: None (occurrence: None)
  Receive Date: 20120822
  Receipt Date: 20110928
  Transmission Date: 20120928
  Serious: No
  Sender: FDA-Public Use
  Company Number: US-ASTRAZENECA-2011SE58453

PATIENT
  Sex: Female

DRUGS (2)
  1. MUCINEX [Concomitant]
  2. SYMBICORT [Suspect]
     Route: 055

REACTIONS (1)
  - ALOPECIA [None]
